FAERS Safety Report 8019428-6 (Version None)
Quarter: 2012Q1

REPORT INFORMATION
  Report Type: 
  Country: None (occurrence: None)
  Receive Date: 20120103
  Receipt Date: 20111222
  Transmission Date: 20120608
  Serious: Yes (Other)
  Sender: FDA-Public Use
  Company Number: PHHY2011AU111928

PATIENT
  Sex: Female

DRUGS (5)
  1. ROSUVASTATIN [Concomitant]
     Indication: BLOOD CHOLESTEROL
  2. LERCANIDIPINE [Concomitant]
  3. FEMARA [Suspect]
     Indication: BREAST CANCER
     Route: 048
  4. PERINDOPRIL ERBUMINE [Concomitant]
     Indication: BLOOD PRESSURE
  5. METFORMIN HCL [Concomitant]

REACTIONS (6)
  - MUSCULOSKELETAL PAIN [None]
  - GAIT DISTURBANCE [None]
  - ARTHRALGIA [None]
  - FEELING HOT [None]
  - OEDEMA PERIPHERAL [None]
  - DIABETES MELLITUS [None]
